FAERS Safety Report 12305319 (Version 1)
Quarter: 2016Q2

REPORT INFORMATION
  Report Type: Spontaneous
  Country: US (occurrence: US)
  Receive Date: 20160426
  Receipt Date: 20160426
  Transmission Date: 20160815
  Serious: No
  Sender: FDA-Public Use
  Company Number: US-GLAXOSMITHKLINE-US2016055113

PATIENT
  Age: 62 Year
  Sex: Female

DRUGS (1)
  1. VOLTAREN [Suspect]
     Active Substance: DICLOFENAC SODIUM
     Indication: ARTHRITIS
     Dosage: 2 G, QD
     Dates: start: 20160323

REACTIONS (5)
  - Drug administered at inappropriate site [Unknown]
  - Incorrect dose administered [Unknown]
  - Drug ineffective for unapproved indication [Unknown]
  - Drug prescribing error [Unknown]
  - Product use issue [Unknown]
